FAERS Safety Report 6581654-0 (Version None)
Quarter: 2010Q1

REPORT INFORMATION
  Report Type: 
  Country: None (occurrence: None)
  Receive Date: 20100211
  Receipt Date: 20100211
  Transmission Date: 20100710
  Serious: Yes (Other)
  Sender: FDA-Public Use
  Company Number: None

PATIENT
  Age: 29 Year
  Sex: Female
  Weight: 63.9572 kg

DRUGS (1)
  1. TOPAMAX [Suspect]
     Indication: CONVULSION
     Dosage: 100MG 2 1/2 TABS BID
     Dates: start: 20090301, end: 20090701

REACTIONS (2)
  - PETIT MAL EPILEPSY [None]
  - PRODUCT SUBSTITUTION ISSUE [None]
